FAERS Safety Report 9474123 (Version 4)
Quarter: 2013Q4

REPORT INFORMATION
  Report Type: Report from Study
  Country: US (occurrence: US)
  Receive Date: 20130823
  Receipt Date: 20131223
  Transmission Date: 20140711
  Serious: Yes (Death, Hospitalization)
  Sender: FDA-Public Use
  Company Number: US-ACTELION-A-US2013-87275

PATIENT
  Age: 77 Year
  Sex: Male

DRUGS (3)
  1. TRACLEER [Suspect]
     Indication: PULMONARY HYPERTENSION
     Dosage: UNK
     Route: 048
     Dates: end: 20130902
  2. SILDENAFIL [Concomitant]
  3. OXYGEN [Concomitant]

REACTIONS (4)
  - Pulmonary hypertension [Fatal]
  - Catheterisation cardiac [Unknown]
  - Dizziness [Fatal]
  - Syncope [Fatal]
